FAERS Safety Report 20862439 (Version 1)
Quarter: 2022Q2

REPORT INFORMATION
  Report Type: Spontaneous
  Country: US (occurrence: None)
  Receive Date: 20220523
  Receipt Date: 20220523
  Transmission Date: 20220720
  Serious: No
  Sender: FDA-Public Use
  Company Number: None

PATIENT
  Sex: Female

DRUGS (1)
  1. LENALIDOMIDE [Suspect]
     Active Substance: LENALIDOMIDE
     Dosage: OTHER FREQUENCY : 21D ON, 7 DAYS OFF;?
     Route: 048
     Dates: start: 20220314

REACTIONS (5)
  - Diarrhoea [None]
  - Fatigue [None]
  - Laboratory test abnormal [None]
  - Drug ineffective [None]
  - Product substitution issue [None]
